FAERS Safety Report 5225063-5 (Version None)
Quarter: 2007Q1

REPORT INFORMATION
  Report Type: 
  Country: None (occurrence: None)
  Receive Date: 20070126
  Receipt Date: 20070111
  Transmission Date: 20070707
  Serious: Yes (Death)
  Sender: FDA-Public Use
  Company Number: 2005S1005495

PATIENT
  Age: 55 Year
  Sex: Male

DRUGS (10)
  1. FENTANYL TRANSDERMAL SYSTEM [Suspect]
     Indication: CANCER PAIN
     Dosage: 25 MCG/HR;EVERY 3 DAYS; TRANSDERMAL
     Route: 062
     Dates: start: 20050513, end: 20050516
  2. FENTANYL TRANSDERMAL SYSTEM [Suspect]
     Indication: CANCER PAIN
     Dosage: 50  MCG/HR;EVERY 3 DAYS; TRANSDERMAL
     Route: 062
     Dates: start: 20050513, end: 20050521
  3. DURAGESIC-100 [Suspect]
     Indication: CANCER PAIN
     Dosage: TRANSDERMAL
     Route: 062
  4. MORPHINE SULFATE [Concomitant]
  5. LORAZEPAM [Concomitant]
  6. PROCHLORPERAZINE EDISYLATE [Concomitant]
  7. DOCUSATE SODIUM/CASANTHRANOL [Concomitant]
  8. FLUCONAZOLE [Concomitant]
  9. LISINOPRIL [Concomitant]
  10. GRADE 1 MOUTH RINSE [Concomitant]

REACTIONS (13)
  - ASTHENIA [None]
  - CARDIAC ARREST [None]
  - CARDIOMEGALY [None]
  - DEHYDRATION [None]
  - DRUG LEVEL INCREASED [None]
  - FATIGUE [None]
  - HYPOTENSION [None]
  - OVERDOSE [None]
  - RESPIRATORY DEPRESSION [None]
  - RESPIRATORY DISTRESS [None]
  - RESPIRATORY FAILURE [None]
  - TACHYCARDIA [None]
  - UNRESPONSIVE TO STIMULI [None]
